FAERS Safety Report 6666563-0 (Version None)
Quarter: 2010Q2

REPORT INFORMATION
  Report Type: 
  Country: None (occurrence: None)
  Receive Date: 20100402
  Receipt Date: 20100323
  Transmission Date: 20101027
  Serious: Yes (Other)
  Sender: FDA-Public Use
  Company Number: JP-ABBOTT-09P-087-0604785-00

PATIENT
  Sex: Male

DRUGS (9)
  1. KALETRA [Suspect]
     Indication: HIV INFECTION
     Dosage: 4 TABLETS DAILY
     Route: 048
     Dates: start: 20080801, end: 20081225
  2. TENOFOVIR DISOPROXIL FUMARATE [Suspect]
     Indication: HIV INFECTION
     Dosage: 300 MG DAILY
     Route: 048
     Dates: start: 20080801, end: 20080820
  3. TENOFOVIR DISOPROXIL FUMARATE [Suspect]
     Dosage: 300 MG DAILY
     Route: 048
     Dates: start: 20080904, end: 20081022
  4. EMTRICITABINE [Suspect]
     Indication: HIV INFECTION
     Dosage: 200 MG DAILY
     Route: 048
     Dates: start: 20080801, end: 20080820
  5. EMTRICITABINE [Suspect]
     Route: 048
     Dates: start: 20080904, end: 20081022
  6. VALGANCICLOVIR HCL [Suspect]
     Indication: ANTIVIRAL PROPHYLAXIS
     Route: 048
     Dates: start: 20080726, end: 20081225
  7. AZITHROMYCIN [Suspect]
     Indication: MYCOBACTERIUM AVIUM COMPLEX INFECTION
     Route: 048
     Dates: start: 20080726
  8. TRUVADA [Concomitant]
     Indication: HIV INFECTION
     Dosage: 1 TABLET DAILY
     Route: 048
     Dates: start: 20080821, end: 20080903
  9. TRUVADA [Concomitant]
     Dosage: 1 TABLET DAILY
     Route: 048
     Dates: start: 20081023, end: 20081225

REACTIONS (2)
  - LIVER DISORDER [None]
  - PANCYTOPENIA [None]
